FAERS Safety Report 19974203 (Version 5)
Quarter: 2021Q4

REPORT INFORMATION
  Report Type: Spontaneous
  Country: US (occurrence: US)
  Receive Date: 20211020
  Receipt Date: 20211211
  Transmission Date: 20220303
  Serious: Yes (Death)
  Sender: FDA-Public Use
  Company Number: NVSC2021US239711

PATIENT
  Age: 74 Year
  Sex: Male

DRUGS (1)
  1. PROMACTA [Suspect]
     Active Substance: ELTROMBOPAG OLAMINE
     Indication: Lung carcinoma cell type unspecified recurrent
     Dosage: 50 MG, QD
     Route: 048
     Dates: start: 20210921

REACTIONS (3)
  - Death [Fatal]
  - Illness [Unknown]
  - Product use in unapproved indication [Unknown]

NARRATIVE: CASE EVENT DATE: 20211113
